FAERS Safety Report 24413333 (Version 1)
Quarter: 2024Q4

REPORT INFORMATION
  Report Type: Spontaneous
  Country: FR (occurrence: FR)
  Receive Date: 20241008
  Receipt Date: 20241008
  Transmission Date: 20250114
  Serious: Yes (Hospitalization, Other)
  Sender: MYLAN
  Company Number: None

PATIENT
  Age: 18 Year
  Sex: Male

DRUGS (4)
  1. ACETAMINOPHEN\OPIUM [Suspect]
     Active Substance: ACETAMINOPHEN\OPIUM
     Indication: Product used for unknown indication
     Dosage: UNK, QID (4/DAY ALTERNATING WITH SMOKED OPIUM (EQUIVALENT TO 100MG OF OPIUM/DAY)
     Route: 048
     Dates: start: 202408, end: 20240912
  2. ALPRAZOLAM [Suspect]
     Active Substance: ALPRAZOLAM
     Indication: Product used for unknown indication
     Dosage: 3 MILLIGRAM, QD
     Route: 048
     Dates: start: 2024, end: 20240912
  3. OPIUM [Suspect]
     Active Substance: OPIUM
     Indication: Product used for unknown indication
     Dosage: 0.3 GRAM, QD
     Route: 055
     Dates: start: 202408, end: 20240912
  4. CANNABIS SATIVA SUBSP. INDICA TOP [Suspect]
     Active Substance: CANNABIS SATIVA SUBSP. INDICA TOP
     Indication: Product used for unknown indication
     Dosage: 5 JOINTS PER DAY OF DRY OR STATIC DOSED AT 40 PERCENT THC
     Route: 055
     Dates: start: 2022

REACTIONS (4)
  - Suicidal ideation [Recovered/Resolved]
  - Substance use disorder [Recovering/Resolving]
  - Drug use disorder [Recovering/Resolving]
  - Hallucination, auditory [Recovering/Resolving]

NARRATIVE: CASE EVENT DATE: 20240901
